FAERS Safety Report 5413684-6 (Version None)
Quarter: 2007Q3

REPORT INFORMATION
  Report Type: 
  Country: None (occurrence: None)
  Receive Date: 20070814
  Receipt Date: 20070813
  Transmission Date: 20080115
  Serious: Yes (Hospitalization, Congenital Anomaly)
  Sender: FDA-Public Use
  Company Number: A0650148A

PATIENT
  Sex: Male
  Weight: 3.1 kg

DRUGS (3)
  1. COMBIVIR [Suspect]
     Indication: HIV INFECTION
     Dates: start: 20060620
  2. ZIDOVUDINE [Suspect]
     Indication: HIV INFECTION
     Dates: start: 20060902, end: 20060902
  3. NELFINAVIR [Concomitant]
     Indication: HIV INFECTION
     Dosage: 2500MG PER DAY
     Dates: start: 20060620

REACTIONS (7)
  - DRUG EXPOSURE DURING PREGNANCY [None]
  - JAUNDICE [None]
  - MACROCEPHALY [None]
  - PATENT DUCTUS ARTERIOSUS [None]
  - RASH [None]
  - TRISOMY 21 [None]
  - VENTRICULAR SEPTAL DEFECT [None]
